FAERS Safety Report 10413707 (Version 1)
Quarter: 2014Q3

REPORT INFORMATION
  Report Type: Spontaneous
  Country: MX (occurrence: MX)
  Receive Date: 20140827
  Receipt Date: 20140827
  Transmission Date: 20150326
  Serious: Yes (Other)
  Sender: FDA-Public Use
  Company Number: PHHY2014MX107228

PATIENT
  Sex: Female

DRUGS (2)
  1. RASILEZ [Suspect]
     Active Substance: ALISKIREN
     Indication: HYPERTENSION
     Dosage: 0.5 DF, BID (HALF A TABLET IN THE MORNING AND HALF AT NIGHT)
     Route: 048
     Dates: start: 201008
  2. CAPOTENA [Concomitant]
     Dosage: 3 UKN, DAILY
     Dates: start: 201008

REACTIONS (3)
  - Accident [Unknown]
  - Wrong technique in drug usage process [Not Recovered/Not Resolved]
  - Bone disorder [Not Recovered/Not Resolved]

NARRATIVE: CASE EVENT DATE: 201008
